FAERS Safety Report 4286848-5 (Version None)
Quarter: 2004Q1

REPORT INFORMATION
  Report Type: 
  Country: None (occurrence: None)
  Receive Date: 20040206
  Receipt Date: 20040129
  Transmission Date: 20041129
  Serious: Yes (Hospitalization, Other)
  Sender: FDA-Public Use
  Company Number: PHNU2004DE00764

PATIENT
  Sex: Female

DRUGS (6)
  1. FORADIL P [Suspect]
     Indication: ASTHMA
     Dosage: 1 DF, BID
     Dates: start: 19980101, end: 20040101
  2. FORADIL P [Suspect]
     Dosage: 1 DF, QD
     Dates: start: 20040101, end: 20040129
  3. DECORTIN [Suspect]
     Dosage: UP TO 100MG/DAY
     Route: 048
  4. DECORTIN [Suspect]
     Dosage: 7.5MG/DAY
     Route: 048
  5. COTRIM FORTE ^HEUMANN^ [Concomitant]
     Route: 048
  6. FAMVIR [Concomitant]
     Indication: PROPHYLAXIS
     Route: 048

REACTIONS (3)
  - CHRONIC LYMPHOCYTIC LEUKAEMIA [None]
  - PNEUMONIA [None]
  - TACHYCARDIA [None]
